FAERS Safety Report 9492782 (Version 1)
Quarter: 2013Q3

REPORT INFORMATION
  Report Type: Spontaneous
  Country: US (occurrence: US)
  Receive Date: 20130830
  Receipt Date: 20130830
  Transmission Date: 20140515
  Serious: No
  Sender: FDA-Public Use
  Company Number: US-009507513-1308USA011545

PATIENT
  Sex: Female

DRUGS (5)
  1. THERAPY UNSPECIFIED [Suspect]
  2. ZESTORETIC [Suspect]
     Indication: HYPERTENSION
     Dosage: 10MG/12.5MG
     Route: 048
     Dates: start: 201210, end: 20130115
  3. LEVOXYL [Concomitant]
  4. EVISTA [Concomitant]
  5. SYNTHROID [Concomitant]

REACTIONS (4)
  - Myalgia [Recovering/Resolving]
  - Drug ineffective [Recovering/Resolving]
  - Fatigue [Recovering/Resolving]
  - Dizziness [Recovering/Resolving]
